FAERS Safety Report 7461488-5 (Version None)
Quarter: 2011Q2

REPORT INFORMATION
  Report Type: 
  Country: None (occurrence: None)
  Receive Date: 20110506
  Receipt Date: 20110502
  Transmission Date: 20111010
  Serious: Yes (Other)
  Sender: FDA-Public Use
  Company Number: US-PFIZER INC-2011036272

PATIENT
  Sex: Female

DRUGS (1)
  1. CHANTIX [Suspect]
     Indication: SMOKING CESSATION THERAPY
     Dosage: STARTER PACK, 0.5 MG THEN 1 MG
     Dates: start: 20090325, end: 20090405

REACTIONS (4)
  - MENTAL DISORDER [None]
  - ANXIETY [None]
  - DEPRESSION [None]
  - AGGRESSION [None]
